FAERS Safety Report 5840713-8 (Version None)
Quarter: 2008Q3

REPORT INFORMATION
  Report Type: 
  Country: None (occurrence: None)
  Receive Date: 20080811
  Receipt Date: 20080807
  Transmission Date: 20090109
  Serious: Yes (Life-Threatening)
  Sender: FDA-Public Use
  Company Number: PHHY2008GB17349

PATIENT
  Age: 81 Year
  Sex: Male

DRUGS (13)
  1. PAMIDRONATE DISODIUM [Suspect]
     Indication: OSTEOPOROSIS
     Dosage: 30 MG
     Route: 042
     Dates: start: 20080702
  2. ALLOPURINOL [Concomitant]
     Indication: GOUT
     Dosage: 300 MG, QD
     Dates: start: 20061113
  3. ATORVASTATIN [Concomitant]
     Dosage: 10 MG, QD
  4. CALCICHEW D3 [Concomitant]
     Dosage: 2 DF, QD
  5. CLOPIDOGREL [Concomitant]
     Dosage: 75 MG, QD
  6. DIGOXIN [Concomitant]
     Dosage: 125 UG, QD
  7. FUROSEMIDE [Concomitant]
     Dosage: 40 MG, QD
  8. LANSOPRAZOLE [Concomitant]
     Dosage: 30 MG/DAY
     Route: 048
  9. NEBIVOLOL HCL [Concomitant]
     Dosage: 5 MG/DAY
     Route: 048
  10. PREDNISOLONE [Concomitant]
     Indication: GOUT
     Dosage: 8 MG/DAY
     Route: 048
     Dates: start: 20060101
  11. QUININE [Concomitant]
     Dosage: 300 MG, QD
  12. RAMIPRIL [Concomitant]
     Dosage: 2.5 MG, QD
  13. TEMAZEPAM [Concomitant]
     Dosage: 10 MG/DAY

REACTIONS (1)
  - MYOCARDIAL INFARCTION [None]
